FAERS Safety Report 15863859 (Version 2)
Quarter: 2019Q1

REPORT INFORMATION
  Report Type: Spontaneous
  Country: FR (occurrence: FR)
  Receive Date: 20190124
  Receipt Date: 20190205
  Transmission Date: 20190417
  Serious: Yes (Other)
  Sender: FDA-Public Use
  Company Number: FR-MYLANLABS-2019M1005727

PATIENT
  Age: 8 Month
  Sex: Female
  Weight: 2.74 kg

DRUGS (12)
  1. DEXAMBUTOL [Suspect]
     Active Substance: ETHAMBUTOL HYDROCHLORIDE
     Indication: MENINGITIS TUBERCULOUS
     Dosage: 120 MILLIGRAM, QD
     Route: 048
     Dates: start: 20180619, end: 20180622
  2. LEVETIRACETAM ARROW [Suspect]
     Active Substance: LEVETIRACETAM
     Indication: EPILEPSY
     Dosage: 40 MILLIGRAM, QD
     Route: 048
     Dates: start: 20180622
  3. RIFADINE                           /00146902/ [Suspect]
     Active Substance: RIFAMPIN SODIUM
     Indication: MENINGITIS TUBERCULOUS
     Dosage: 120 MILLIGRAM, QD
     Route: 042
     Dates: start: 20180622
  4. AMOXICILLINE SANDOZ [Suspect]
     Active Substance: AMOXICILLIN
     Indication: LUNG INFECTION
     Dosage: 120 MILLIGRAM/KILOGRAM, QD
     Route: 048
     Dates: start: 20180613, end: 20180618
  5. MIDAZOLAM [Suspect]
     Active Substance: MIDAZOLAM HYDROCHLORIDE
     Indication: SEDATION
     Dosage: NR
     Route: 042
     Dates: start: 20180622
  6. PIRILENE [Suspect]
     Active Substance: PYRAZINAMIDE
     Indication: MENINGITIS TUBERCULOUS
     Dosage: 200 MILLIGRAM, QD
     Route: 048
     Dates: start: 20180619
  7. SUFENTANIL MYLAN 50 MICROGRAMMES/ML SOLUTION INJECTABLE [Suspect]
     Active Substance: SUFENTANIL
     Indication: SEDATION
     Dosage: NR
     Route: 042
     Dates: start: 20180622
  8. NICOZID [Suspect]
     Active Substance: ISONIAZID
     Indication: MENINGITIS TUBERCULOUS
     Dosage: 80 MILLIGRAM
     Route: 042
     Dates: start: 20180622
  9. CORTANCYL [Suspect]
     Active Substance: PREDNISONE
     Indication: PRODUCT USED FOR UNKNOWN INDICATION
     Dosage: 10 MILLIGRAM, QD
     Route: 048
     Dates: start: 20180622
  10. RIFADINE                           /00146901/ [Suspect]
     Active Substance: RIFAMPIN
     Indication: MENINGITIS TUBERCULOUS
     Dosage: 60 MILLIGRAM, QD
     Route: 048
     Dates: start: 20180619, end: 20180622
  11. RIMIFON [Suspect]
     Active Substance: ISONIAZID
     Indication: MENINGITIS TUBERCULOUS
     Dosage: 75 MILLIGRAM, QD
     Route: 048
     Dates: start: 20180619, end: 20180622
  12. MYAMBUTOL [Suspect]
     Active Substance: ETHAMBUTOL HYDROCHLORIDE
     Indication: MENINGITIS TUBERCULOUS
     Dosage: 150 MILLIGRAM, QD
     Route: 042
     Dates: start: 20180622

REACTIONS (1)
  - Hypertransaminasaemia [Not Recovered/Not Resolved]

NARRATIVE: CASE EVENT DATE: 20180627
